FAERS Safety Report 19315394 (Version 1)
Quarter: 2021Q2

REPORT INFORMATION
  Report Type: Spontaneous
  Country: US (occurrence: US)
  Receive Date: 20210527
  Receipt Date: 20210527
  Transmission Date: 20210717
  Serious: No
  Sender: FDA-Public Use
  Company Number: US-AMGEN-USASP2021078146

PATIENT
  Age: 81 Year
  Sex: Female

DRUGS (4)
  1. NPLATE [Suspect]
     Active Substance: ROMIPLOSTIM
     Dosage: 150 MICROGRAM
     Route: 065
  2. PROLIA [Suspect]
     Active Substance: DENOSUMAB
     Indication: OSTEOPOROSIS
     Dosage: UNK UNK, Q12MO
     Route: 065
  3. NOVOCAINE [PROCAINE] [Concomitant]
  4. NPLATE [Suspect]
     Active Substance: ROMIPLOSTIM
     Indication: IMMUNE THROMBOCYTOPENIA
     Dosage: 125 MICROGRAM
     Route: 065

REACTIONS (13)
  - Fatigue [Unknown]
  - Arthralgia [Unknown]
  - Blood pressure increased [Unknown]
  - Platelet count decreased [Unknown]
  - Myalgia [Unknown]
  - Hypoaesthesia oral [Unknown]
  - Liver function test abnormal [Recovered/Resolved]
  - Off label use [Unknown]
  - Ocular hyperaemia [Unknown]
  - Anxiety [Unknown]
  - Back pain [Unknown]
  - Headache [Unknown]
  - Dizziness [Unknown]

NARRATIVE: CASE EVENT DATE: 2021
